FAERS Safety Report 16041588 (Version 1)
Quarter: 2019Q1

REPORT INFORMATION
  Report Type: Spontaneous
  Country: US (occurrence: US)
  Receive Date: 20190306
  Receipt Date: 20190306
  Transmission Date: 20190418
  Serious: No
  Sender: FDA-Public Use
  Company Number: US-PFIZER INC-2019090555

PATIENT
  Age: 74 Year
  Sex: Female

DRUGS (11)
  1. PREMARIN [Suspect]
     Active Substance: ESTROGENS, CONJUGATED
     Dosage: 20 MG, UNK
  2. OTEZLA [Suspect]
     Active Substance: APREMILAST
     Dosage: 60 MG, 1X/DAY [60 MILLIGRAM (30 MG, 2 IN 1 D)]
     Route: 048
     Dates: start: 20181219, end: 20181220
  3. METFORMIN [Suspect]
     Active Substance: METFORMIN HYDROCHLORIDE
     Dosage: UNK
  4. PAXIL [Suspect]
     Active Substance: PAROXETINE HYDROCHLORIDE
     Dosage: UNK
  5. LOSARTAN. [Suspect]
     Active Substance: LOSARTAN
     Dosage: UNK
  6. FENOFIBRATE. [Suspect]
     Active Substance: FENOFIBRATE
     Dosage: UNK
  7. OTEZLA [Suspect]
     Active Substance: APREMILAST
     Dosage: 20 MG, UNK
     Route: 048
     Dates: start: 20181214
  8. CYCLOSPORIN [Suspect]
     Active Substance: CYCLOSPORINE
     Dosage: UNK
  9. DUPIXENT [Suspect]
     Active Substance: DUPILUMAB
     Dosage: 20 MG, UNK
  10. HYDROXYZINE PAMOATE. [Suspect]
     Active Substance: HYDROXYZINE PAMOATE
     Dosage: UNK
  11. OTEZLA [Suspect]
     Active Substance: APREMILAST
     Dosage: 10 MG, UNK
     Route: 048
     Dates: start: 20181214

REACTIONS (5)
  - Nausea [Recovered/Resolved]
  - Diarrhoea [Recovered/Resolved]
  - Dyspepsia [Recovered/Resolved]
  - Headache [Recovered/Resolved]
  - Depression [Recovered/Resolved]

NARRATIVE: CASE EVENT DATE: 201812
